FAERS Safety Report 24030727 (Version 2)
Quarter: 2024Q3

REPORT INFORMATION
  Report Type: Spontaneous
  Country: US (occurrence: US)
  Receive Date: 20240628
  Receipt Date: 20240911
  Transmission Date: 20241017
  Serious: No
  Sender: PFIZER
  Company Number: US-PFIZER INC-PV202400043708

PATIENT
  Age: 70 Year
  Sex: Female

DRUGS (3)
  1. XELJANZ [Suspect]
     Active Substance: TOFACITINIB CITRATE
     Indication: Colitis ulcerative
     Dosage: 10 MG, 2X/DAY
     Route: 048
     Dates: start: 2021
  2. XELJANZ [Suspect]
     Active Substance: TOFACITINIB CITRATE
     Dosage: 5 MG, 2X/DAY (STRENGTH: 5 MG)
     Route: 048
     Dates: start: 202401
  3. XELJANZ [Suspect]
     Active Substance: TOFACITINIB CITRATE
     Dosage: 5 MG, 2X/DAY (STRENGTH: 5 MG)
     Route: 048
     Dates: start: 20240124

REACTIONS (4)
  - Lymphoedema [Recovering/Resolving]
  - Condition aggravated [Recovering/Resolving]
  - Weight increased [Unknown]
  - Product dose omission issue [Unknown]
